FAERS Safety Report 6928046-X (Version None)
Quarter: 2010Q3

REPORT INFORMATION
  Report Type: 
  Country: None (occurrence: None)
  Receive Date: 20100816
  Receipt Date: 20100816
  Transmission Date: 20110219
  Serious: No
  Sender: FDA-Public Use
  Company Number: None

PATIENT
  Age: 43 Year
  Sex: Female
  Weight: 9.0719 kg

DRUGS (1)
  1. LUPRON DEPOT [Suspect]
     Indication: OVARIAN CYST
     Dosage: 3.75 MG MONTHLY SQ
     Route: 058
     Dates: start: 20030115, end: 20030215

REACTIONS (1)
  - AUTOIMMUNE THYROIDITIS [None]
